FAERS Safety Report 17173569 (Version 1)
Quarter: 2019Q4

REPORT INFORMATION
  Report Type: Spontaneous
  Country: DK (occurrence: DK)
  Receive Date: 20191218
  Receipt Date: 20191218
  Transmission Date: 20200122
  Serious: Yes (Other)
  Sender: FDA-Public Use
  Company Number: DK-BAXTER-2019BAX025127

PATIENT
  Age: 66 Year
  Sex: Male

DRUGS (5)
  1. RITUXIMAB. [Suspect]
     Active Substance: RITUXIMAB
     Indication: DIFFUSE LARGE B-CELL LYMPHOMA
     Dosage: POTENCY: UNKNOWN. DOSE: UNKNOWN. UNKNOWN MAH. TREATED WITH A REDUCED DOSE DUE TO KIDNEY FAILURE
     Route: 065
     Dates: start: 20151124, end: 20160530
  2. ADRIAMYCIN [Suspect]
     Active Substance: DOXORUBICIN HYDROCHLORIDE
     Indication: DIFFUSE LARGE B-CELL LYMPHOMA
     Dosage: POTENCY: UNKNOWN. DOSE: UNKNOWN. TREATED WITH A REDUCED DOSE DUE TO KIDNEY FAILURE.
     Route: 065
     Dates: start: 20151124, end: 20160530
  3. SENDOXAN [Suspect]
     Active Substance: CYCLOPHOSPHAMIDE
     Indication: DIFFUSE LARGE B-CELL LYMPHOMA
     Dosage: ANHYDROUS, POTENCY: UNKNOWN. DOSE: UNKNOWN. TREATED WITH A REDUCED DOSE DUE TO KIDNEY FAILURE.
     Route: 065
     Dates: start: 20151124, end: 20160530
  4. ONCOVIN [Suspect]
     Active Substance: VINCRISTINE SULFATE
     Indication: DIFFUSE LARGE B-CELL LYMPHOMA
     Dosage: POTENCY: 1 MG/ML. DOSE: UNKNOWN. TREATED WITH A REDUCED DOSE DUE TO KIDNEY FAILURE
     Route: 065
     Dates: start: 20151124, end: 20160530
  5. PREDNISOLONE. [Suspect]
     Active Substance: PREDNISOLONE
     Indication: DIFFUSE LARGE B-CELL LYMPHOMA
     Dosage: POTENCY: UNKNOWN. DOSE: UNKNOWN. UNKNOWN MAH. TREATED WITH A REDUCED DOSE DUE TO KIDNEY FAILURE
     Route: 065
     Dates: start: 20151124, end: 20160530

REACTIONS (4)
  - Weight increased [Recovered/Resolved]
  - Dyspnoea [Recovered/Resolved]
  - Ejection fraction decreased [Recovered/Resolved]
  - Cardiac failure [Recovered/Resolved]

NARRATIVE: CASE EVENT DATE: 201808
